FAERS Safety Report 11850311 (Version 1)
Quarter: 2015Q4

REPORT INFORMATION
  Report Type: Spontaneous
  Country: US (occurrence: US)
  Receive Date: 20151218
  Receipt Date: 20151218
  Transmission Date: 20160305
  Serious: No
  Sender: FDA-Public Use
  Company Number: US-JNJFOC-20151105247

PATIENT
  Age: 71 Year
  Sex: Female
  Weight: 59.88 kg

DRUGS (2)
  1. TYLENOL REGULAR STRENGTH [Suspect]
     Active Substance: ACETAMINOPHEN
     Indication: SHOULDER ARTHROPLASTY
     Dosage: 2 TABLETS, EVERY 3.5-4 HOURS
     Route: 048
  2. TYLENOL EXTRA STRENGTH [Concomitant]
     Active Substance: ACETAMINOPHEN
     Indication: MUSCULOSKELETAL PAIN
     Dosage: 2 CAPLETS, EVERY 6 HOURS AS NEEDED

REACTIONS (4)
  - Drug administration error [Unknown]
  - Inappropriate schedule of drug administration [Unknown]
  - Product packaging issue [Unknown]
  - Drug effect decreased [Unknown]
